FAERS Safety Report 14210134 (Version 1)
Quarter: 2017Q4

REPORT INFORMATION
  Report Type: Spontaneous
  Country: IT (occurrence: IT)
  Receive Date: 20171121
  Receipt Date: 20171121
  Transmission Date: 20180321
  Serious: Yes (Hospitalization)
  Sender: FDA-Public Use
  Company Number: IT-BAYER-2017-216991

PATIENT
  Age: 62 Year
  Sex: Female

DRUGS (3)
  1. STALEVO [Concomitant]
     Active Substance: CARBIDOPA\ENTACAPONE\LEVODOPA
     Indication: PARKINSON^S DISEASE
  2. CIPROXIN 200/100 MG/ML [Suspect]
     Active Substance: CIPROFLOXACIN
     Indication: URINARY TRACT INFECTION
     Dosage: DAILY DOSE 800 MG
     Route: 041
     Dates: start: 20120913, end: 20120917
  3. TENORMIN [Concomitant]
     Active Substance: ATENOLOL

REACTIONS (3)
  - Phlebitis [Recovered/Resolved]
  - Dermo-hypodermitis [Recovered/Resolved]
  - Injection site extravasation [Recovered/Resolved]

NARRATIVE: CASE EVENT DATE: 20120917
